FAERS Safety Report 10541829 (Version 1)
Quarter: 2014Q4

REPORT INFORMATION
  Report Type: Spontaneous
  Country: US (occurrence: US)
  Receive Date: 20141024
  Receipt Date: 20141024
  Transmission Date: 20150529
  Serious: Yes (Hospitalization, Other)
  Sender: FDA-Public Use
  Company Number: PHHY2014US136701

PATIENT
  Age: 21 Month
  Sex: Male
  Weight: 14 kg

DRUGS (1)
  1. ACETYLSALICYLIC ACID [Suspect]
     Active Substance: ASPIRIN
     Indication: PRODUCT USED FOR UNKNOWN INDICATION

REACTIONS (31)
  - Pain [Recovered/Resolved]
  - Hypovolaemia [Recovered/Resolved]
  - Somnolence [Recovered/Resolved]
  - Constipation [Recovered/Resolved]
  - Urine output decreased [Recovered/Resolved]
  - Gastrointestinal sounds abnormal [Recovered/Resolved]
  - Tachycardia [Recovered/Resolved]
  - Sinus tachycardia [Recovered/Resolved]
  - Drug administration error [Recovered/Resolved]
  - Feeling abnormal [Recovered/Resolved]
  - Respiratory distress [Recovered/Resolved]
  - Abdominal tenderness [Recovered/Resolved]
  - Mental status changes [Recovered/Resolved]
  - Hypocalcaemia [Recovered/Resolved]
  - Overdose [Recovered/Resolved]
  - Hyperhidrosis [Recovered/Resolved]
  - Hypokalaemia [Recovered/Resolved]
  - Diarrhoea [Recovered/Resolved]
  - Abdominal distension [Recovered/Resolved]
  - Hyperventilation [Recovered/Resolved]
  - Tachypnoea [Recovered/Resolved]
  - Dyspnoea [Recovered/Resolved]
  - Lethargy [Recovered/Resolved]
  - Moaning [Recovered/Resolved]
  - Toxicity to various agents [Recovered/Resolved]
  - Vomiting [Recovered/Resolved]
  - Hypophagia [Recovered/Resolved]
  - Hyperthermia [Recovered/Resolved]
  - Sensory loss [Recovered/Resolved]
  - Metabolic acidosis [Recovered/Resolved]
  - Analgesic drug level increased [Unknown]
